FAERS Safety Report 21424397 (Version 3)
Quarter: 2023Q1

REPORT INFORMATION
  Report Type: Spontaneous
  Country: US (occurrence: US)
  Receive Date: 20221007
  Receipt Date: 20230131
  Transmission Date: 20230417
  Serious: No
  Sender: FDA-Public Use
  Company Number: US-BIOGEN-2022BI01158356

PATIENT
  Age: 48 Year
  Sex: Female
  Weight: 60.836 kg

DRUGS (6)
  1. SPINRAZA [Suspect]
     Active Substance: NUSINERSEN
     Indication: Spinal muscular atrophy
     Dosage: LOADING DOSE
     Route: 050
  2. SPINRAZA [Suspect]
     Active Substance: NUSINERSEN
     Dosage: LOADING DOSE
     Route: 050
  3. SPINRAZA [Suspect]
     Active Substance: NUSINERSEN
     Dosage: LOADING DOSE
     Route: 050
  4. SPINRAZA [Suspect]
     Active Substance: NUSINERSEN
     Dosage: LOADING DOSE
     Route: 050
  5. SPINRAZA [Suspect]
     Active Substance: NUSINERSEN
     Dosage: MAINTENANCE DOSE
     Route: 050
  6. SPINRAZA [Suspect]
     Active Substance: NUSINERSEN
     Route: 050
     Dates: start: 20210421

REACTIONS (6)
  - Red blood cell count decreased [Unknown]
  - Haematocrit decreased [Unknown]
  - White blood cell count decreased [Unknown]
  - Neutrophil count decreased [Unknown]
  - Haemoglobin decreased [Unknown]
  - Red cell distribution width decreased [Unknown]

NARRATIVE: CASE EVENT DATE: 20220922
